FAERS Safety Report 5615271-3 (Version None)
Quarter: 2008Q1

REPORT INFORMATION
  Report Type: 
  Country: None (occurrence: None)
  Receive Date: 20080206
  Receipt Date: 20080129
  Transmission Date: 20080703
  Serious: Yes (Hospitalization)
  Sender: FDA-Public Use
  Company Number: PHFR2008IE00729

PATIENT
  Age: 46 Year
  Sex: Female

DRUGS (4)
  1. CLOZARIL [Suspect]
     Indication: SCHIZOPHRENIA
     Dosage: 650 MG/DAY
     Route: 048
     Dates: start: 19970327
  2. CLOZARIL [Suspect]
     Dosage: 44 X 100 MG
     Route: 048
     Dates: start: 20080125
  3. NUROFEN PLUS [Suspect]
     Route: 065
     Dates: start: 20080125
  4. MORPHINE [Suspect]

REACTIONS (4)
  - CONFUSIONAL STATE [None]
  - DEPRESSED LEVEL OF CONSCIOUSNESS [None]
  - DISORIENTATION [None]
  - INTENTIONAL OVERDOSE [None]
